FAERS Safety Report 7209595-6 (Version None)
Quarter: 2011Q1

REPORT INFORMATION
  Report Type: 
  Country: None (occurrence: None)
  Receive Date: 20110104
  Receipt Date: 20110103
  Transmission Date: 20110831
  Serious: Yes (Other)
  Sender: FDA-Public Use
  Company Number: US-PFIZER INC-2010099295

PATIENT
  Sex: Female
  Weight: 72.562 kg

DRUGS (9)
  1. ATENOLOL [Suspect]
     Indication: HEADACHE
     Dosage: UNK
     Route: 048
  2. TOPAMAX [Suspect]
     Indication: HEADACHE
     Dosage: UNK
     Route: 048
  3. CYMBALTA [Suspect]
     Indication: HEADACHE
     Dosage: UNK
     Route: 048
  4. ADVIL [Suspect]
     Indication: HEADACHE
     Dosage: UNK
     Route: 048
  5. BOTOX [Suspect]
     Indication: HEADACHE
     Dosage: UNK
     Route: 048
     Dates: start: 20100401
  6. FIORICET [Suspect]
     Indication: HEADACHE
     Dosage: UNK MG, UNK
     Route: 048
  7. NORTRIPTYLINE [Suspect]
     Indication: HEADACHE
     Dosage: UNK
     Route: 048
  8. PAXIL [Suspect]
     Indication: HEADACHE
     Dosage: UNK
     Route: 048
  9. RELPAX [Suspect]
     Indication: MIGRAINE
     Dosage: 40 MG, AS NEEDED
     Route: 048

REACTIONS (3)
  - OSTEOPOROSIS [None]
  - DRUG INEFFECTIVE [None]
  - HEADACHE [None]
